FAERS Safety Report 20098196 (Version 1)
Quarter: 2021Q4

REPORT INFORMATION
  Report Type: Spontaneous
  Country: US (occurrence: US)
  Receive Date: 20211122
  Receipt Date: 20211122
  Transmission Date: 20220303
  Serious: Yes (Other)
  Sender: FDA-Public Use
  Company Number: US-NOVARTISPH-NVSC2021US264465

PATIENT
  Age: 62 Year
  Sex: Female

DRUGS (2)
  1. RANITIDINE [Suspect]
     Active Substance: RANITIDINE
     Indication: Gastrointestinal disorder
     Dosage: 150 MG, QD
     Route: 065
     Dates: start: 201003, end: 202003
  2. RANITIDINE [Suspect]
     Active Substance: RANITIDINE
     Indication: Gastrointestinal disorder
     Dosage: 150 MG, QD
     Route: 065
     Dates: start: 201003, end: 202003

REACTIONS (2)
  - Breast cancer stage IV [Unknown]
  - Incorrect dose administered [Unknown]

NARRATIVE: CASE EVENT DATE: 20170301
